FAERS Safety Report 22353113 (Version 1)
Quarter: 2023Q2

REPORT INFORMATION
  Report Type: Spontaneous
  Country: GB (occurrence: GB)
  Receive Date: 20230523
  Receipt Date: 20230523
  Transmission Date: 20230722
  Serious: Yes (Death)
  Sender: FDA-Public Use
  Company Number: GB-RP-039188

PATIENT
  Age: 35 Year
  Sex: Male

DRUGS (7)
  1. MIRTAZAPINE [Suspect]
     Active Substance: MIRTAZAPINE
     Dosage: UNK
  2. METHADONE [Suspect]
     Active Substance: METHADONE HYDROCHLORIDE
     Indication: Pain
     Dosage: 60 MILLIGRAM
  3. METHADONE [Suspect]
     Active Substance: METHADONE HYDROCHLORIDE
     Indication: Pain
  4. METHADONE [Suspect]
     Active Substance: METHADONE HYDROCHLORIDE
     Indication: Neuralgia
  5. METHADONE [Suspect]
     Active Substance: METHADONE HYDROCHLORIDE
     Indication: Cancer pain
  6. GABAPENTIN [Suspect]
     Active Substance: GABAPENTIN
     Dosage: UNK
  7. PROMETHAZINE [Suspect]
     Active Substance: PROMETHAZINE HYDROCHLORIDE
     Dosage: UNK

REACTIONS (3)
  - Respiratory depression [Fatal]
  - Somnolence [Fatal]
  - Toxicity to various agents [Fatal]
